FAERS Safety Report 25374174 (Version 1)
Quarter: 2025Q2

REPORT INFORMATION
  Report Type: Spontaneous
  Country: US (occurrence: None)
  Receive Date: 20250528
  Receipt Date: 20250528
  Transmission Date: 20250717
  Serious: Yes (Disabling, Other)
  Sender: FDA-CTU
  Company Number: None

PATIENT
  Age: 68 Year
  Sex: Female
  Weight: 71.67 kg

DRUGS (1)
  1. EVENITY [Suspect]
     Active Substance: ROMOSOZUMAB-AQQG
     Indication: Osteoporosis
     Dosage: FREQUENCY : MONTHLY;?OTHER ROUTE : INJECT IN ARM MUSCLE;?
     Route: 050
     Dates: start: 20241104, end: 20250109

REACTIONS (13)
  - Headache [None]
  - Rash [None]
  - Muscle spasms [None]
  - Arthralgia [None]
  - Pain in extremity [None]
  - Arthralgia [None]
  - Groin pain [None]
  - Arthralgia [None]
  - Pain in extremity [None]
  - Asthenia [None]
  - Palpitations [None]
  - Nausea [None]
  - Insomnia [None]

NARRATIVE: CASE EVENT DATE: 20241104
